FAERS Safety Report 24677619 (Version 1)
Quarter: 2024Q4

REPORT INFORMATION
  Report Type: Spontaneous
  Country: US (occurrence: US)
  Receive Date: 20241129
  Receipt Date: 20241129
  Transmission Date: 20250115
  Serious: Yes (Hospitalization, Other)
  Sender: WOCKHARDT LIMITED
  Company Number: US-WOCKHARDT LIMITED-2024WLD000056

PATIENT
  Age: 35 Year
  Sex: Male

DRUGS (1)
  1. BUPROPION HYDROCHLORIDE [Suspect]
     Active Substance: BUPROPION HYDROCHLORIDE
     Indication: Product used for unknown indication
     Dosage: 150 MILLIGRAM

REACTIONS (3)
  - Pulmonary alveolar haemorrhage [Recovered/Resolved]
  - Overdose [Unknown]
  - Incorrect route of product administration [Unknown]
